FAERS Safety Report 17159391 (Version 3)
Quarter: 2020Q1

REPORT INFORMATION
  Report Type: Spontaneous
  Country: DK (occurrence: DK)
  Receive Date: 20191216
  Receipt Date: 20200226
  Transmission Date: 20200409
  Serious: Yes (Other)
  Sender: FDA-Public Use
  Company Number: DK-GLAXOSMITHKLINE-DK2019206286

PATIENT
  Age: 51 Year
  Sex: Male

DRUGS (3)
  1. ITRACONAZOLE. [Suspect]
     Active Substance: ITRACONAZOLE
     Indication: TRICHOPHYTOSIS
     Dosage: UNK
     Route: 062
  2. TERBINAFINE. [Suspect]
     Active Substance: TERBINAFINE
     Indication: TRICHOPHYTOSIS
     Dosage: UNK, SYSTEMIC 3 COURSES
     Route: 048
     Dates: start: 2017
  3. TERBINAFINE HYDROCHLORIDE. [Suspect]
     Active Substance: TERBINAFINE HYDROCHLORIDE
     Indication: TRICHOPHYTOSIS
     Dosage: UNK, 2 COURSES
     Route: 061
     Dates: start: 2017

REACTIONS (4)
  - Drug resistance [Unknown]
  - Pathogen resistance [Unknown]
  - Drug ineffective [Unknown]
  - Treatment failure [Unknown]
